FAERS Safety Report 23882097 (Version 1)
Quarter: 2024Q2

REPORT INFORMATION
  Report Type: Report from Study
  Country: US (occurrence: US)
  Receive Date: 20240521
  Receipt Date: 20240521
  Transmission Date: 20240716
  Serious: Yes (Other)
  Sender: FDA-Public Use
  Company Number: US-ABBVIE-5768081

PATIENT
  Age: 63 Year
  Sex: Female

DRUGS (2)
  1. SKYRIZI [Suspect]
     Active Substance: RISANKIZUMAB-RZAA
     Indication: Psoriasis
     Dosage: STRENGTH:150MG/ML?WEEK 0
     Route: 058
     Dates: start: 20240215, end: 20240215
  2. SKYRIZI [Suspect]
     Active Substance: RISANKIZUMAB-RZAA
     Dosage: STRENGTH:150MG/ML?WEEK 4 THEN EVERY 12 WEEKS THEREAFTER?SKYRIZI WAS ONGOING
     Route: 058
     Dates: start: 20240314, end: 20240314

REACTIONS (3)
  - Postmenopausal haemorrhage [Unknown]
  - Urinary tract infection [Unknown]
  - Diverticulitis [Unknown]

NARRATIVE: CASE EVENT DATE: 20240201
